FAERS Safety Report 19573637 (Version 3)
Quarter: 2021Q4

REPORT INFORMATION
  Report Type: Spontaneous
  Country: US (occurrence: US)
  Receive Date: 20210717
  Receipt Date: 20211223
  Transmission Date: 20220303
  Serious: No
  Sender: FDA-Public Use
  Company Number: US-SA-2019SA056819

PATIENT
  Age: 61 Year
  Sex: Female

DRUGS (2)
  1. CAPRELSA [Suspect]
     Active Substance: VANDETANIB
     Indication: Thyroid cancer
     Dosage: 100 MG, QD
     Route: 048
     Dates: start: 20150911
  2. CAPRELSA [Suspect]
     Active Substance: VANDETANIB
     Dosage: UNK

REACTIONS (5)
  - Influenza [Unknown]
  - Abdominal discomfort [Unknown]
  - Illness [Unknown]
  - Unevaluable event [Unknown]
  - Off label use [Unknown]
